FAERS Safety Report 23678526 (Version 3)
Quarter: 2024Q3

REPORT INFORMATION
  Report Type: Spontaneous
  Country: JP (occurrence: None)
  Receive Date: 20240327
  Receipt Date: 20240725
  Transmission Date: 20241017
  Serious: Yes (Hospitalization, Disabling)
  Sender: ASTRAZENECA
  Company Number: 2024A070179

PATIENT
  Age: 80 Year
  Sex: Female
  Weight: 48 kg

DRUGS (15)
  1. LYNPARZA [Suspect]
     Active Substance: OLAPARIB
     Indication: Ovarian cancer recurrent
     Route: 048
     Dates: start: 20190311, end: 20190405
  2. LYNPARZA [Suspect]
     Active Substance: OLAPARIB
     Indication: Ovarian cancer recurrent
     Dosage: DOSE UNKNOWN
     Route: 048
     Dates: end: 201910
  3. LYNPARZA [Suspect]
     Active Substance: OLAPARIB
     Indication: Ovarian cancer recurrent
     Dosage: DOSE UNKNOWN
     Route: 048
     Dates: start: 201910, end: 202104
  4. LYNPARZA [Suspect]
     Active Substance: OLAPARIB
     Indication: Ovarian cancer recurrent
     Dosage: DOSE UNKNOWN
     Route: 048
     Dates: start: 20220629, end: 20240125
  5. LYNPARZA [Suspect]
     Active Substance: OLAPARIB
     Indication: Ovarian cancer recurrent
     Dosage: DOSE UNKNOWN
     Route: 048
     Dates: start: 20240208, end: 20240307
  6. PACLITAXEL [Suspect]
     Active Substance: PACLITAXEL
     Indication: Ovarian cancer recurrent
     Dosage: DOSE UNKNOWN
     Dates: start: 20170405, end: 20170814
  7. PACLITAXEL [Suspect]
     Active Substance: PACLITAXEL
     Indication: Ovarian cancer recurrent
     Dosage: DOSE UNKNOWN
     Dates: start: 20180926, end: 20181111
  8. CARBOPLATIN [Suspect]
     Active Substance: CARBOPLATIN
     Indication: Ovarian cancer recurrent
     Dosage: DOSE UNKNOWN
     Dates: start: 20170405, end: 20170814
  9. CARBOPLATIN [Suspect]
     Active Substance: CARBOPLATIN
     Indication: Ovarian cancer recurrent
     Dosage: DOSE UNKNOWN
     Dates: start: 20180926, end: 20181111
  10. CARBOPLATIN [Suspect]
     Active Substance: CARBOPLATIN
     Indication: Ovarian cancer recurrent
     Dosage: DOSE UNKNOWN
     Dates: start: 20181119, end: 20190217
  11. CARBOPLATIN [Suspect]
     Active Substance: CARBOPLATIN
     Indication: Ovarian cancer recurrent
     Dosage: DOSE UNKNOWN
     Dates: start: 20220316, end: 20220621
  12. CARBOPLATIN [Suspect]
     Active Substance: CARBOPLATIN
     Indication: Ovarian cancer recurrent
     Dosage: DOSE UNKNOWN
     Dates: start: 20181119, end: 201901
  13. CRESTOR [Suspect]
     Active Substance: ROSUVASTATIN CALCIUM
     Indication: Ovarian cancer recurrent
     Dosage: DOSE UNKNOWN
     Route: 048
     Dates: start: 20180515
  14. LOXOPROFEN [Concomitant]
     Active Substance: LOXOPROFEN
     Dosage: 60.0MG UNKNOWN
     Route: 048
     Dates: start: 20230510
  15. HERBALS [Concomitant]
     Active Substance: HERBALS
     Dosage: 2.5G UNKNOWN
     Route: 048
     Dates: start: 20240307

REACTIONS (4)
  - Myelodysplastic syndrome [Not Recovered/Not Resolved]
  - COVID-19 [Unknown]
  - Haemoglobin decreased [Unknown]
  - Malaise [Unknown]

NARRATIVE: CASE EVENT DATE: 20231227
